FAERS Safety Report 9465923 (Version 2)
Quarter: 2013Q3

REPORT INFORMATION
  Report Type: Spontaneous
  Country: CH (occurrence: CH)
  Receive Date: 20130820
  Receipt Date: 20130910
  Transmission Date: 20140515
  Serious: Yes (Other)
  Sender: FDA-Public Use
  Company Number: CH-AMGEN-CHESP2013057673

PATIENT
  Age: 65 Year
  Sex: Female
  Weight: 57 kg

DRUGS (5)
  1. NEUPOGEN [Suspect]
     Indication: LEUKOPENIA
     Dosage: 30 MIC, ONCE
     Route: 058
     Dates: start: 20130805
  2. NEUPOGEN [Suspect]
     Indication: NEUTROPENIA
  3. CARBOPLATIN [Concomitant]
     Indication: PERITONEAL CARCINOMA METASTATIC
     Dosage: UNK UNK, 3 WEEKLY
  4. XARELTO [Concomitant]
     Indication: VENOUS THROMBOSIS
     Dosage: 20 MG, 1-0-0
     Route: 048
     Dates: start: 20130621
  5. CALCIMAGON D3 [Concomitant]
     Indication: HYPOVITAMINOSIS
     Dosage: 1250MG/400E , 1-0-0
     Route: 048
     Dates: start: 20130903

REACTIONS (1)
  - Visual impairment [Recovered/Resolved]
